FAERS Safety Report 12566992 (Version 2)
Quarter: 2016Q3

REPORT INFORMATION
  Report Type: Report from Study
  Country: CO (occurrence: CO)
  Receive Date: 20160718
  Receipt Date: 20160803
  Transmission Date: 20161109
  Serious: Yes (Hospitalization)
  Sender: FDA-Public Use
  Company Number: PHHY2016CO097285

PATIENT
  Sex: Male
  Weight: 77 kg

DRUGS (7)
  1. AZATHIOPRINE. [Concomitant]
     Active Substance: AZATHIOPRINE
     Indication: PRODUCT USED FOR UNKNOWN INDICATION
     Route: 065
  2. DANAZOL. [Concomitant]
     Active Substance: DANAZOL
     Indication: PRODUCT USED FOR UNKNOWN INDICATION
     Route: 065
  3. EXJADE [Suspect]
     Active Substance: DEFERASIROX
     Indication: SICKLE CELL ANAEMIA
     Dosage: 500 MG, BID
     Route: 048
  4. EXJADE [Suspect]
     Active Substance: DEFERASIROX
     Dosage: 0.5 DF, QD
     Route: 048
  5. EXJADE [Suspect]
     Active Substance: DEFERASIROX
     Dosage: 1.5 DF, UNK
     Route: 048
  6. PREDNISOLONE. [Concomitant]
     Active Substance: PREDNISOLONE
     Indication: PRODUCT USED FOR UNKNOWN INDICATION
     Route: 065
  7. EXJADE [Suspect]
     Active Substance: DEFERASIROX
     Dosage: 2 DF, UNK
     Route: 048

REACTIONS (9)
  - Chikungunya virus infection [Unknown]
  - Ascites [Recovered/Resolved]
  - Gastric dilatation [Recovered/Resolved]
  - Wrong technique in product usage process [Unknown]
  - Gastritis [Recovered/Resolved]
  - Vomiting [Unknown]
  - Drug intolerance [Recovered/Resolved]
  - Inappropriate schedule of drug administration [Unknown]
  - Abdominal pain upper [Unknown]
